FAERS Safety Report 7530998-4 (Version None)
Quarter: 2011Q2

REPORT INFORMATION
  Report Type: 
  Country: None (occurrence: None)
  Receive Date: 20110608
  Receipt Date: 20110511
  Transmission Date: 20111010
  Serious: Yes (Hospitalization, Other)
  Sender: FDA-Public Use
  Company Number: US-BAYER-201030472NA

PATIENT
  Age: 24 Year
  Sex: Female
  Weight: 67.574 kg

DRUGS (3)
  1. YAZ [Suspect]
     Indication: CONTRACEPTION
     Dosage: UNK UNK, QD
     Route: 048
     Dates: start: 20080815, end: 20080821
  2. YAZ [Suspect]
     Indication: ACNE
  3. YAZ [Suspect]
     Indication: PREMENSTRUAL SYNDROME

REACTIONS (6)
  - INJURY [None]
  - CHOLELITHIASIS [None]
  - CHOLECYSTECTOMY [None]
  - NAUSEA [None]
  - PAIN [None]
  - CHOLECYSTITIS CHRONIC [None]
